FAERS Safety Report 8534687-9 (Version None)
Quarter: 2012Q3

REPORT INFORMATION
  Report Type: 
  Country: None (occurrence: None)
  Receive Date: 20120724
  Receipt Date: 20120718
  Transmission Date: 20120928
  Serious: Yes (Other)
  Sender: FDA-Public Use
  Company Number: US-GLAXOSMITHKLINE-A0984928A

PATIENT
  Age: 54 Year
  Sex: Female

DRUGS (2)
  1. FLUTICASONE PROPIONATE [Suspect]
     Indication: MULTIPLE ALLERGIES
     Route: 045
     Dates: start: 20120420, end: 20120601
  2. AZITHROMYCIN [Concomitant]

REACTIONS (11)
  - COUGH [None]
  - BLOODY DISCHARGE [None]
  - NASAL INFLAMMATION [None]
  - NASAL OBSTRUCTION [None]
  - DYSPEPSIA [None]
  - GASTROOESOPHAGEAL REFLUX DISEASE [None]
  - PAROSMIA [None]
  - INSOMNIA [None]
  - VISUAL IMPAIRMENT [None]
  - NIGHT BLINDNESS [None]
  - DYSGEUSIA [None]
